FAERS Safety Report 23186845 (Version 1)
Quarter: 2023Q4

REPORT INFORMATION
  Report Type: Spontaneous
  Country: US (occurrence: None)
  Receive Date: 20231115
  Receipt Date: 20231115
  Transmission Date: 20240109
  Serious: Yes (Other)
  Sender: FDA-Public Use
  Company Number: None

PATIENT
  Age: 42 Year
  Sex: Female
  Weight: 67.5 kg

DRUGS (2)
  1. QBREXZA [Suspect]
     Active Substance: GLYCOPYRRONIUM TOSYLATE
     Indication: Hyperhidrosis
     Dosage: OTHER QUANTITY : 1 TOWELETTE;?FREQUENCY : DAILY;?
     Route: 061
     Dates: start: 20231106, end: 20231108
  2. VITAMIN D [Concomitant]
     Active Substance: VITAMIN D NOS

REACTIONS (2)
  - Mydriasis [None]
  - Vision blurred [None]

NARRATIVE: CASE EVENT DATE: 20231108
